FAERS Safety Report 24638143 (Version 1)
Quarter: 2024Q4

REPORT INFORMATION
  Report Type: Report from Study
  Country: US (occurrence: US)
  Receive Date: 20241119
  Receipt Date: 20241119
  Transmission Date: 20250115
  Serious: Yes (Other)
  Sender: PUMA
  Company Number: US-PUMA BIOTECHNOLOGY, INC.-2024-PUM-US001525

PATIENT

DRUGS (1)
  1. NERLYNX [Suspect]
     Active Substance: NERATINIB
     Indication: Breast cancer female
     Dosage: 120 MG, DAILY
     Route: 048
     Dates: start: 202410

REACTIONS (2)
  - Emergency care [Unknown]
  - Drug titration [Unknown]

NARRATIVE: CASE EVENT DATE: 20240101
